FAERS Safety Report 6647712-7 (Version None)
Quarter: 2010Q1

REPORT INFORMATION
  Report Type: 
  Country: None (occurrence: None)
  Receive Date: 20100323
  Receipt Date: 20100323
  Transmission Date: 20100710
  Serious: Yes (Other)
  Sender: FDA-Public Use
  Company Number: None

PATIENT
  Age: 66 Year
  Sex: Female
  Weight: 86.637 kg

DRUGS (2)
  1. VIVAGLOBIN [Suspect]
     Indication: IMMUNODEFICIENCY COMMON VARIABLE
     Dosage: 8 GRAMS WEEKLY SQ INFUSION
     Route: 058
     Dates: start: 20100312
  2. VIVAGLOBIN [Suspect]
     Indication: IMMUNODEFICIENCY COMMON VARIABLE
     Dosage: 8 GRAMS WEEKLY SQ INFUSION
     Route: 058
     Dates: start: 20100319

REACTIONS (3)
  - ANGIOEDEMA [None]
  - ARTHRALGIA [None]
  - GAIT DISTURBANCE [None]
